FAERS Safety Report 17727073 (Version 3)
Quarter: 2020Q3

REPORT INFORMATION
  Report Type: Spontaneous
  Country: US (occurrence: US)
  Receive Date: 20200430
  Receipt Date: 20200819
  Transmission Date: 20201102
  Serious: Yes (Other)
  Sender: FDA-Public Use
  Company Number: US-HBP-2019US019705

PATIENT
  Age: 83 Year
  Sex: Male

DRUGS (3)
  1. VALCHLOR [Suspect]
     Active Substance: MECHLORETHAMINE
     Indication: CUTANEOUS T-CELL LYMPHOMA
     Dosage: THIN FILM, QD
     Route: 061
     Dates: start: 201908, end: 20191218
  2. BRENTUXIMAB [Concomitant]
     Active Substance: BRENTUXIMAB VEDOTIN
     Dosage: UNK
     Dates: start: 20200802
  3. VALCHLOR [Suspect]
     Active Substance: MECHLORETHAMINE
     Dosage: UNK, SINGLE
     Route: 061
     Dates: start: 20200406

REACTIONS (7)
  - Skin erosion [Not Recovered/Not Resolved]
  - Rash [Unknown]
  - Blister [Not Recovered/Not Resolved]
  - Cutaneous T-cell lymphoma recurrent [Not Recovered/Not Resolved]
  - Off label use [Unknown]
  - Skin discolouration [Not Recovered/Not Resolved]
  - Scar [Unknown]

NARRATIVE: CASE EVENT DATE: 20200406
